FAERS Safety Report 6930176-3 (Version None)
Quarter: 2010Q3

REPORT INFORMATION
  Report Type: 
  Country: None (occurrence: None)
  Receive Date: 20100818
  Receipt Date: 20100804
  Transmission Date: 20110219
  Serious: No
  Sender: FDA-Public Use
  Company Number: US-PFIZER INC-2010098564

PATIENT
  Sex: Female
  Weight: 61 kg

DRUGS (9)
  1. CHANTIX [Suspect]
     Indication: SMOKING CESSATION THERAPY
     Dosage: UNK
     Dates: start: 20100101
  2. LYRICA [Suspect]
     Indication: FIBROMYALGIA
     Dosage: 75 MG, 1X/DAY
     Dates: start: 20100803
  3. NEURONTIN [Suspect]
     Indication: MIGRAINE
     Dosage: 300 MG, 1X/DAY
  4. ALLEGRA D 24 HOUR [Concomitant]
     Dosage: DAILY
  5. ULTRAM [Concomitant]
     Indication: MENSTRUAL DISORDER
     Dosage: FREQUENCY: AS NEEDED,
  6. RHINOCORT [Concomitant]
     Dosage: UNK
  7. CALTRATE [Concomitant]
     Dosage: UNK
  8. LORTAB [Concomitant]
     Dosage: FREQUENCY: AS NEEDED,
  9. SOMA [Concomitant]
     Dosage: FREQUENCY: AS NEEDED,

REACTIONS (17)
  - ANXIETY [None]
  - BLOOD CALCIUM DECREASED [None]
  - BLOOD URINE PRESENT [None]
  - CRYING [None]
  - INSOMNIA [None]
  - IRRITABILITY [None]
  - LYMPHOCYTE COUNT DECREASED [None]
  - MEAN CELL HAEMOGLOBIN INCREASED [None]
  - MEAN CELL VOLUME INCREASED [None]
  - NERVOUSNESS [None]
  - NEUTROPHIL COUNT INCREASED [None]
  - PAIN [None]
  - PERSONALITY CHANGE [None]
  - PROTEIN TOTAL DECREASED [None]
  - RED BLOOD CELL COUNT DECREASED [None]
  - RESTLESSNESS [None]
  - TRANSAMINASES DECREASED [None]
